FAERS Safety Report 8172236-8 (Version None)
Quarter: 2012Q1

REPORT INFORMATION
  Report Type: 
  Country: None (occurrence: None)
  Receive Date: 20120229
  Receipt Date: 20120223
  Transmission Date: 20120608
  Serious: Yes (Death)
  Sender: FDA-Public Use
  Company Number: US-BRISTOL-MYERS SQUIBB COMPANY-16416422

PATIENT
  Age: 85 Year
  Sex: Female

DRUGS (2)
  1. CYTOXAN [Suspect]
     Indication: LYMPHOMA
     Dates: start: 20111116
  2. RITUXAN [Suspect]
     Indication: LYMPHOMA
     Dates: start: 20111116

REACTIONS (1)
  - DEATH [None]
